FAERS Safety Report 5464954-7 (Version None)
Quarter: 2007Q3

REPORT INFORMATION
  Report Type: 
  Country: None (occurrence: None)
  Receive Date: 20070820
  Receipt Date: 20070620
  Transmission Date: 20080115
  Serious: No
  Sender: FDA-Public Use
  Company Number: TPA2007A01334

PATIENT
  Sex: Female

DRUGS (1)
  1. ROZEREM [Suspect]
     Indication: INSOMNIA
     Dosage: 8 MG, HS, PER ORAL
     Route: 048
     Dates: start: 20070401, end: 20070601

REACTIONS (5)
  - BLOOD PROLACTIN ABNORMAL [None]
  - BREAST DISCHARGE [None]
  - BREAST ENGORGEMENT [None]
  - FEELING ABNORMAL [None]
  - MENSTRUAL DISORDER [None]
